FAERS Safety Report 23496186 (Version 1)
Quarter: 2024Q1

REPORT INFORMATION
  Report Type: Spontaneous
  Country: US (occurrence: None)
  Receive Date: 20240207
  Receipt Date: 20240207
  Transmission Date: 20240410
  Serious: No
  Sender: FDA-Public Use
  Company Number: US-ROCHE-3459279

PATIENT
  Age: 48 Year
  Sex: Male

DRUGS (1)
  1. XOLAIR [Suspect]
     Active Substance: OMALIZUMAB
     Indication: Nasal polyps
     Route: 065
     Dates: start: 20230928

REACTIONS (3)
  - Therapeutic response unexpected [Unknown]
  - Sinus disorder [Unknown]
  - Ill-defined disorder [Unknown]
